FAERS Safety Report 8835561 (Version 1)
Quarter: 2012Q4

REPORT INFORMATION
  Report Type: 
  Country: US (occurrence: US)
  Receive Date: 20121011
  Receipt Date: 20121011
  Transmission Date: 20130627
  Serious: Yes (Hospitalization)
  Sender: FDA-Public Use
  Company Number: US-ACTELION-A-NJ2012-69747

PATIENT
  Age: 59 Year
  Sex: Female

DRUGS (5)
  1. VELETRI [Suspect]
     Indication: PULMONARY ARTERIAL HYPERTENSION
     Dosage: 80 ng/kg, per min
     Route: 041
     Dates: start: 20120423
  2. TRACLEER [Suspect]
     Indication: PULMONARY ARTERIAL HYPERTENSION
     Dosage: UNK
     Route: 048
     Dates: start: 20070305
  3. SILDENAFIL [Concomitant]
  4. COUMADIN [Concomitant]
  5. ALDACTONE [Concomitant]

REACTIONS (5)
  - Catheter site infection [Unknown]
  - Device related infection [Unknown]
  - Catheter removal [Recovering/Resolving]
  - Device leakage [Recovering/Resolving]
  - Central venous catheterisation [Unknown]
